FAERS Safety Report 5570938-0 (Version None)
Quarter: 2007Q4

REPORT INFORMATION
  Report Type: 
  Country: None (occurrence: None)
  Receive Date: 20071221
  Receipt Date: 20071212
  Transmission Date: 20080405
  Serious: Yes (Hospitalization)
  Sender: FDA-Public Use
  Company Number: US-JNJFOC-20071204656

PATIENT
  Sex: Male
  Weight: 48.08 kg

DRUGS (10)
  1. LEVAQUIN [Suspect]
     Indication: DRUG USE FOR UNKNOWN INDICATION
     Route: 065
  2. DIFLUCAN [Concomitant]
     Route: 065
  3. ROXANOL [Concomitant]
     Route: 065
  4. POTASSIUM CHLORIDE [Concomitant]
     Route: 065
  5. MAGNESIUM OXIDE [Concomitant]
     Route: 065
  6. MEGACE [Concomitant]
     Route: 065
  7. DOCUSATE [Concomitant]
     Route: 065
  8. DURAGESIC-100 [Concomitant]
     Route: 065
  9. PROCRIT [Concomitant]
     Route: 058
  10. PHENERGAN HCL [Concomitant]
     Route: 065

REACTIONS (1)
  - PNEUMONIA [None]
